FAERS Safety Report 23542984 (Version 2)
Quarter: 2024Q4

REPORT INFORMATION
  Report Type: Spontaneous
  Country: US (occurrence: US)
  Receive Date: 20240220
  Receipt Date: 20241112
  Transmission Date: 20250115
  Serious: Yes (Life-Threatening, Hospitalization)
  Sender: Unknown Manufacturer
  Company Number: US-MLMSERVICE-20240201-4806612-1

PATIENT
  Age: 51 Year
  Sex: Male

DRUGS (2)
  1. LEVETIRACETAM [Suspect]
     Active Substance: LEVETIRACETAM
     Indication: Anxiety
  2. SULFAMETHOXAZOLE\TRIMETHOPRIM [Suspect]
     Active Substance: SULFAMETHOXAZOLE\TRIMETHOPRIM
     Indication: Urinary tract infection

REACTIONS (3)
  - Drug interaction [Recovering/Resolving]
  - Stevens-Johnson syndrome [Recovering/Resolving]
  - Off label use [Recovering/Resolving]
